FAERS Safety Report 9421327 (Version 1)
Quarter: 2013Q3

REPORT INFORMATION
  Report Type: Spontaneous
  Country: US (occurrence: US)
  Receive Date: 20130712
  Receipt Date: 20130712
  Transmission Date: 20140515
  Serious: Yes (Other)
  Sender: FDA-Public Use
  Company Number: QR71744-01

PATIENT
  Sex: Female

DRUGS (1)
  1. GAMMAPLEX [Suspect]
     Route: 042

REACTIONS (4)
  - Migraine [None]
  - Renal pain [None]
  - Pyrexia [None]
  - Chills [None]
